FAERS Safety Report 21733495 (Version 1)
Quarter: 2022Q4

REPORT INFORMATION
  Report Type: Spontaneous
  Country: US (occurrence: US)
  Receive Date: 20221215
  Receipt Date: 20221215
  Transmission Date: 20230113
  Serious: Yes (Hospitalization)
  Sender: FDA-Public Use
  Company Number: US-SA-SAC20221214000637

PATIENT
  Sex: Female

DRUGS (1)
  1. DUPIXENT [Suspect]
     Active Substance: DUPILUMAB
     Dosage: 300 MG, QOW (300 MG /2ML )
     Route: 058
     Dates: start: 202103

REACTIONS (3)
  - Hospitalisation [Unknown]
  - Paraesthesia [Unknown]
  - Chest discomfort [Unknown]
